FAERS Safety Report 15927643 (Version 1)
Quarter: 2019Q1

REPORT INFORMATION
  Report Type: Spontaneous
  Country: US (occurrence: US)
  Receive Date: 20190205
  Receipt Date: 20190205
  Transmission Date: 20190417
  Serious: Yes (Death, Other)
  Sender: FDA-Public Use
  Company Number: US-BRISTOL-MYERS SQUIBB COMPANY-BMS-2019-010408

PATIENT

DRUGS (2)
  1. YERVOY [Suspect]
     Active Substance: IPILIMUMAB
     Indication: BRONCHIAL CARCINOMA
     Dosage: 140 MG, Q3WK= EVERY 21 DAYS
     Route: 042
     Dates: start: 2017
  2. OPDIVO [Suspect]
     Active Substance: NIVOLUMAB
     Indication: BRONCHIAL CARCINOMA
     Dosage: 420 MG, Q3WK= EVERY 21 DAYS
     Route: 042
     Dates: start: 2017

REACTIONS (2)
  - Product use in unapproved indication [Unknown]
  - Death [Fatal]
